FAERS Safety Report 5787864-4 (Version None)
Quarter: 2008Q2

REPORT INFORMATION
  Report Type: 
  Country: None (occurrence: None)
  Receive Date: 20080625
  Receipt Date: 20080616
  Transmission Date: 20081010
  Serious: Yes (Hospitalization)
  Sender: FDA-Public Use
  Company Number: DE-JNJFOC-20080404181

PATIENT
  Age: 58 Year
  Sex: Male
  Weight: 82 kg

DRUGS (5)
  1. INFLIXIMAB, RECOMBINANT [Suspect]
     Indication: ANKYLOSING SPONDYLITIS
     Route: 042
  2. DICLOFENAC SODIUM [Concomitant]
     Indication: ANKYLOSING SPONDYLITIS
  3. OMEPRAZOLE [Concomitant]
     Route: 048
  4. OMEPRAZOLE [Concomitant]
     Indication: GASTROINTESTINAL DISORDER THERAPY
     Route: 048
  5. PANTOPRAZOLE SODIUM [Concomitant]

REACTIONS (2)
  - LATENT TUBERCULOSIS [None]
  - MIDDLE EAR INFLAMMATION [None]
